FAERS Safety Report 8481705 (Version 2)
Quarter: 2013Q1

REPORT INFORMATION
  Report Type: Spontaneous
  Country: JP (occurrence: JP)
  Receive Date: 20120329
  Receipt Date: 20130225
  Transmission Date: 20140127
  Serious: Yes (Life-Threatening, Hospitalization)
  Sender: FDA-Public Use
  Company Number: JP-B.I. PHARMACEUTICALS,INC./RIDGEFIELD-2011-BP-26873NB

PATIENT
  Age: 71 Year
  Sex: Male
  Weight: 59.8 kg

DRUGS (5)
  1. PRAZAXA [Suspect]
     Indication: CEREBRAL INFARCTION
     Dosage: 220 MG
     Route: 048
     Dates: start: 20110617, end: 20110812
  2. PRAZAXA [Suspect]
     Indication: ATRIAL FIBRILLATION
     Dosage: 220 MG
     Route: 048
     Dates: start: 20110809, end: 20110812
  3. HEPARIN NA [Concomitant]
     Indication: BLADDER CANCER
     Route: 065
     Dates: start: 20110805
  4. TAKEPRON [Concomitant]
     Indication: GASTRIC ULCER
     Dosage: 15 MG
     Route: 048
  5. DEPAKENE-R [Concomitant]
     Indication: CONVULSION
     Dosage: 200 MG
     Route: 048

REACTIONS (3)
  - Haematuria [Recovered/Resolved]
  - Urinary bladder haemorrhage [Not Recovered/Not Resolved]
  - Urinary retention [Recovered/Resolved]
